FAERS Safety Report 7299078-X (Version None)
Quarter: 2011Q1

REPORT INFORMATION
  Report Type: 
  Country: None (occurrence: None)
  Receive Date: 20110217
  Receipt Date: 20110211
  Transmission Date: 20110831
  Serious: Yes (Other)
  Sender: FDA-Public Use
  Company Number: CA-JNJFOC-20110204496

PATIENT
  Sex: Male
  Weight: 74 kg

DRUGS (4)
  1. SULFASALAZINE [Concomitant]
  2. OXYCODONE [Concomitant]
  3. REMICADE [Suspect]
     Indication: OSTEOMYELITIS
     Dosage: 4 INFUSIONS TOTAL
     Route: 042
  4. DICLOFENAC [Concomitant]

REACTIONS (2)
  - SKIN EXFOLIATION [None]
  - RASH [None]
